FAERS Safety Report 7920215-5 (Version None)
Quarter: 2011Q4

REPORT INFORMATION
  Report Type: 
  Country: None (occurrence: None)
  Receive Date: 20111117
  Receipt Date: 20111114
  Transmission Date: 20120403
  Serious: Yes (Other)
  Sender: FDA-Public Use
  Company Number: JP-PFIZER INC-2011261585

PATIENT
  Age: 55 Year
  Sex: Female

DRUGS (14)
  1. LYRICA [Suspect]
     Indication: PAIN IN EXTREMITY
  2. AMARYL [Concomitant]
     Dosage: 0.5 MG/DAY
  3. DEPAKENE [Concomitant]
     Dosage: 800 MG/DAY
  4. BROVARIN [Concomitant]
     Dosage: 0.3 MG/DAY
  5. TETRAMIDE [Concomitant]
     Dosage: 10 MG/DAY
  6. BASEN [Concomitant]
     Dosage: 0.2 MG/DAY
  7. SEFTAC [Concomitant]
     Dosage: 50 MG/DAY
  8. GASMOTIN [Concomitant]
     Dosage: 5 MG/DAY
  9. MAGMITT [Concomitant]
     Dosage: 500 MG/DAY
  10. LEVOTOMIN [Concomitant]
     Dosage: 25 MG/DAY
  11. ARICEPT [Concomitant]
     Dosage: 5 MG/DAY
  12. LYRICA [Suspect]
     Indication: HYPOAESTHESIA
     Dosage: 150 MG, DAILY
     Route: 048
     Dates: start: 20110927, end: 20111026
  13. ALOGLIPTIN BENZOATE [Concomitant]
     Dosage: 25 MG/DAY
  14. CRESTOR [Concomitant]
     Dosage: 2.5 MG/DAY

REACTIONS (1)
  - LIVER FUNCTION TEST ABNORMAL [None]
